FAERS Safety Report 11750586 (Version 1)
Quarter: 2015Q4

REPORT INFORMATION
  Report Type: Spontaneous
  Country: GB (occurrence: GB)
  Receive Date: 20151118
  Receipt Date: 20151118
  Transmission Date: 20160304
  Serious: Yes (Other)
  Sender: FDA-Public Use
  Company Number: GB-BANPHARM-20154401

PATIENT
  Age: 75 Year
  Sex: Male

DRUGS (2)
  1. IBUPROFEN UNKNOWN PRODUCT [Suspect]
     Active Substance: IBUPROFEN
     Indication: BACK PAIN
  2. ZOLADEX [Concomitant]
     Active Substance: GOSERELIN ACETATE
     Indication: PROSTATE CANCER

REACTIONS (11)
  - Haemorrhage [Recovering/Resolving]
  - Shock [Unknown]
  - Urticaria [Not Recovered/Not Resolved]
  - Pain [Not Recovered/Not Resolved]
  - Application site burn [Recovering/Resolving]
  - Skin exfoliation [Recovering/Resolving]
  - Scar pain [Not Recovered/Not Resolved]
  - Thermal burn [Unknown]
  - Emotional distress [Unknown]
  - Burning sensation [Recovering/Resolving]
  - Pruritus [Not Recovered/Not Resolved]
